FAERS Safety Report 17027199 (Version 1)
Quarter: 2019Q4

REPORT INFORMATION
  Report Type: Spontaneous
  Country: FR (occurrence: FR)
  Receive Date: 20191113
  Receipt Date: 20191113
  Transmission Date: 20200122
  Serious: Yes (Congenital Anomaly, Other)
  Sender: FDA-Public Use
  Company Number: FR-AMGEN-FRASP2019185680

PATIENT

DRUGS (15)
  1. OXYCODONE [Suspect]
     Active Substance: OXYCODONE
     Indication: EXPOSURE DURING PREGNANCY
     Dosage: UNK
     Route: 064
  2. LENOGRASTIM [Suspect]
     Active Substance: LENOGRASTIM
     Indication: EXPOSURE DURING PREGNANCY
     Dosage: UNK
     Route: 064
  3. CARBOPLATIN. [Suspect]
     Active Substance: CARBOPLATIN
     Indication: EXPOSURE DURING PREGNANCY
     Dosage: UNK
     Route: 064
  4. PACLITAXEL. [Suspect]
     Active Substance: PACLITAXEL
     Indication: EXPOSURE DURING PREGNANCY
     Dosage: UNK
     Route: 064
  5. AMIKACIN. [Suspect]
     Active Substance: AMIKACIN
     Indication: EXPOSURE DURING PREGNANCY
     Dosage: UNK
     Route: 064
  6. CEFTRIAXONE. [Suspect]
     Active Substance: CEFTRIAXONE
     Indication: EXPOSURE DURING PREGNANCY
     Dosage: UNK
     Route: 064
  7. APREPITANT. [Suspect]
     Active Substance: APREPITANT
     Indication: EXPOSURE DURING PREGNANCY
     Dosage: UNK
     Route: 064
  8. PHLOROGLUCINOL [Suspect]
     Active Substance: PHLOROGLUCINOL
     Indication: EXPOSURE DURING PREGNANCY
     Dosage: UNK
     Route: 064
  9. RASBURICASE [Suspect]
     Active Substance: RASBURICASE
     Indication: EXPOSURE DURING PREGNANCY
     Dosage: UNK
     Route: 064
  10. PANTOPRAZOLE [Suspect]
     Active Substance: PANTOPRAZOLE
     Indication: EXPOSURE DURING PREGNANCY
     Dosage: UNK
     Route: 064
  11. PEGFILGRASTIM [Suspect]
     Active Substance: PEGFILGRASTIM
     Indication: EXPOSURE DURING PREGNANCY
     Dosage: UNK
     Route: 064
  12. ETOPOSIDE. [Suspect]
     Active Substance: ETOPOSIDE
     Indication: EXPOSURE DURING PREGNANCY
     Dosage: UNK
     Route: 064
  13. TAZOCILLINE [Suspect]
     Active Substance: PIPERACILLIN SODIUM\TAZOBACTAM SODIUM
     Indication: EXPOSURE DURING PREGNANCY
     Dosage: UNK
     Route: 064
  14. FENTANYL. [Suspect]
     Active Substance: FENTANYL
     Indication: EXPOSURE DURING PREGNANCY
     Dosage: UNK
     Route: 064
  15. METOCLOPRAMIDE. [Suspect]
     Active Substance: METOCLOPRAMIDE
     Indication: EXPOSURE DURING PREGNANCY
     Dosage: UNK
     Route: 064

REACTIONS (1)
  - Cardiac septal defect [Unknown]
